FAERS Safety Report 19254048 (Version 1)
Quarter: 2021Q2

REPORT INFORMATION
  Report Type: Spontaneous
  Country: US (occurrence: US)
  Receive Date: 20210513
  Receipt Date: 20210513
  Transmission Date: 20210717
  Serious: Yes (Other)
  Sender: FDA-Public Use
  Company Number: US-PFIZER INC-2014101982

PATIENT

DRUGS (3)
  1. VIRACEPT [Suspect]
     Active Substance: NELFINAVIR MESYLATE
     Dosage: UNK
  2. RESCRIPTOR [Suspect]
     Active Substance: DELAVIRDINE MESYLATE
     Dosage: UNK
  3. SELZENTRY [Suspect]
     Active Substance: MARAVIROC
     Dosage: UNK

REACTIONS (3)
  - Renal failure [Unknown]
  - Renal impairment [Unknown]
  - Creatinine renal clearance increased [Unknown]
